FAERS Safety Report 16894640 (Version 1)
Quarter: 2019Q4

REPORT INFORMATION
  Report Type: Spontaneous
  Country: CA (occurrence: CA)
  Receive Date: 20191008
  Receipt Date: 20191008
  Transmission Date: 20200122
  Serious: Yes (Other)
  Sender: FDA-Public Use
  Company Number: CA-PFIZER INC-2019433602

PATIENT
  Sex: Female

DRUGS (9)
  1. ALTACE [Suspect]
     Active Substance: RAMIPRIL
     Dosage: UNK
     Route: 048
  2. BUDESONIDE. [Suspect]
     Active Substance: BUDESONIDE
     Dosage: UNK
     Route: 055
  3. HYDROCHLOROTHIAZIDE. [Suspect]
     Active Substance: HYDROCHLOROTHIAZIDE
     Dosage: UNK, UNK
     Route: 065
  4. BUDESONIDE/FORMOTEROL FUMARATE [Suspect]
     Active Substance: BUDESONIDE\FORMOTEROL FUMARATE
     Dosage: UNK
  5. CLOPIDOGREL BISULFATE. [Suspect]
     Active Substance: CLOPIDOGREL BISULFATE
     Dosage: UNK, UNK
     Route: 065
  6. RISEDRONATE SODIUM. [Suspect]
     Active Substance: RISEDRONATE SODIUM
     Dosage: UNK
     Route: 065
  7. RABEPRAZOLE SODIUM. [Suspect]
     Active Substance: RABEPRAZOLE SODIUM
     Dosage: UNK
     Route: 065
  8. AIROMIR [SALBUTAMOL SULFATE] [Suspect]
     Active Substance: ALBUTEROL SULFATE
     Dosage: METERED-DOSE
     Route: 048
  9. PREDNISONE. [Suspect]
     Active Substance: PREDNISONE
     Dosage: UNK, UNK
     Route: 065

REACTIONS (9)
  - Neutrophilia [Unknown]
  - Eosinophil count increased [Unknown]
  - Bacterial infection [Unknown]
  - Polyp [Unknown]
  - Gastrooesophageal reflux disease [Unknown]
  - Obstructive airways disorder [Unknown]
  - Eosinophilic bronchitis [Unknown]
  - Asthma [Unknown]
  - Myocardial infarction [Unknown]
